FAERS Safety Report 6718192-8 (Version None)
Quarter: 2010Q2

REPORT INFORMATION
  Report Type: 
  Country: None (occurrence: None)
  Receive Date: 20100510
  Receipt Date: 20100428
  Transmission Date: 20101027
  Serious: Yes (Other)
  Sender: FDA-Public Use
  Company Number: US-SANOFI-AVENTIS-2010SA025645

PATIENT
  Sex: Male

DRUGS (1)
  1. UROXATRAL [Suspect]
     Route: 048

REACTIONS (5)
  - ABDOMINAL PAIN UPPER [None]
  - INTESTINAL OBSTRUCTION [None]
  - NOCTURIA [None]
  - OESOPHAGEAL ULCER [None]
  - PROSTATITIS [None]
